FAERS Safety Report 21340178 (Version 4)
Quarter: 2022Q4

REPORT INFORMATION
  Report Type: Report from Study
  Country: US (occurrence: None)
  Receive Date: 20220916
  Receipt Date: 20221110
  Transmission Date: 20230112
  Serious: Yes (Death, Hospitalization, Other)
  Sender: FDA-Public Use
  Company Number: US-Merck Healthcare KGaA-9350824

PATIENT
  Sex: Male

DRUGS (2)
  1. REBIF [Suspect]
     Active Substance: INTERFERON BETA-1A
     Indication: Relapsing-remitting multiple sclerosis
     Route: 058
  2. REBIF [Suspect]
     Active Substance: INTERFERON BETA-1A
     Route: 058
     Dates: start: 20090404

REACTIONS (7)
  - Gastric cancer [Fatal]
  - Body temperature increased [Unknown]
  - Diabetes mellitus [Unknown]
  - Asthenia [Unknown]
  - Gait inability [Unknown]
  - Constipation [Unknown]
  - Diarrhoea [Unknown]
